FAERS Safety Report 24581557 (Version 1)
Quarter: 2024Q4

REPORT INFORMATION
  Report Type: Report from Study
  Country: CA (occurrence: CA)
  Receive Date: 20241105
  Receipt Date: 20241105
  Transmission Date: 20250114
  Serious: Yes (Hospitalization, Other)
  Sender: VERITY PHARMACEUTICALS INC.
  Company Number: CA-VER-202400526

PATIENT
  Age: 82 Year
  Sex: Male

DRUGS (2)
  1. TRELSTAR [Suspect]
     Active Substance: TRIPTORELIN PAMOATE
     Indication: Prostate cancer
     Dosage: (22.5 MILLIGRAM(S), IN 6 MONTH)
     Route: 030
     Dates: start: 20240118, end: 20240118
  2. TRELSTAR [Suspect]
     Active Substance: TRIPTORELIN PAMOATE
     Indication: Prostate cancer
     Dosage: (22.5 MILLIGRAM(S), IN 6 MONTH)
     Route: 030
     Dates: start: 20240411, end: 20240411

REACTIONS (4)
  - Prostate cancer metastatic [Not Recovered/Not Resolved]
  - Blood pressure systolic increased [Unknown]
  - Oxygen saturation decreased [Unknown]
  - Off label use [Unknown]

NARRATIVE: CASE EVENT DATE: 20240411
